FAERS Safety Report 14598992 (Version 1)
Quarter: 2018Q1

REPORT INFORMATION
  Report Type: Spontaneous
  Country: US (occurrence: US)
  Receive Date: 20180303
  Receipt Date: 20180303
  Transmission Date: 20180509
  Serious: Yes (Other)
  Sender: FDA-Public Use
  Company Number: None

PATIENT
  Age: 29 Year
  Sex: Female
  Weight: 48.6 kg

DRUGS (11)
  1. PROBIOTIC [Concomitant]
     Active Substance: PROBIOTICS NOS
  2. LORAZEPAM. [Concomitant]
     Active Substance: LORAZEPAM
  3. LO LOESTRIN FE [Concomitant]
     Active Substance: ETHINYL ESTRADIOL\NORETHINDRONE ACETATE
  4. ADDERALL [Concomitant]
     Active Substance: AMPHETAMINE ASPARTATE\AMPHETAMINE SULFATE\DEXTROAMPHETAMINE SACCHARATE\DEXTROAMPHETAMINE SULFATE
  5. DUPIXENT [Suspect]
     Active Substance: DUPILUMAB
     Indication: DERMATITIS ATOPIC
     Dosage: ?          OTHER FREQUENCY:EVERY TWO WEEKS;OTHER ROUTE:INJECTED INTO SKIN?
     Dates: start: 20180205, end: 20180301
  6. BENADRYL [Concomitant]
     Active Substance: DIPHENHYDRAMINE HYDROCHLORIDE
  7. VITAMIN D3 [Concomitant]
     Active Substance: CHOLECALCIFEROL
  8. VITAMIN B2 [Concomitant]
     Active Substance: RIBOFLAVIN
  9. MAGNESIUM [Concomitant]
     Active Substance: MAGNESIUM
  10. QUERCETIN [Concomitant]
     Active Substance: QUERCETIN
  11. ALEVE [Concomitant]
     Active Substance: NAPROXEN SODIUM

REACTIONS (12)
  - Neuralgia [None]
  - Rash [None]
  - Migraine [None]
  - Immune system disorder [None]
  - Vertigo [None]
  - Eye pain [None]
  - Ear pain [None]
  - Arthralgia [None]
  - Facial pain [None]
  - Eye pruritus [None]
  - Anxiety [None]
  - Oral herpes [None]

NARRATIVE: CASE EVENT DATE: 20180219
